FAERS Safety Report 4436346-0 (Version None)
Quarter: 2004Q2

REPORT INFORMATION
  Report Type: 
  Country: None (occurrence: None)
  Receive Date: 20040628
  Receipt Date: 20040308
  Transmission Date: 20050107
  Serious: Yes (Other)
  Sender: FDA-Public Use
  Company Number: 205168

PATIENT

DRUGS (1)
  1. RITUXAN [Suspect]

REACTIONS (1)
  - MONONEUROPATHY [None]
